FAERS Safety Report 9228919 (Version 1)
Quarter: 2013Q2

REPORT INFORMATION
  Report Type: Spontaneous
  Country: CH (occurrence: CH)
  Receive Date: 20130412
  Receipt Date: 20130412
  Transmission Date: 20140414
  Serious: Yes (Hospitalization)
  Sender: FDA-Public Use
  Company Number: PHHY2013CH033346

PATIENT
  Age: 87 Year
  Sex: Female
  Weight: 65 kg

DRUGS (11)
  1. DIGOXIN [Suspect]
     Indication: ATRIAL FIBRILLATION
     Dosage: 0.25 MG, QD
     Route: 048
     Dates: start: 20130219, end: 20130319
  2. LISINOPRIL [Interacting]
     Indication: CARDIAC FAILURE
     Dosage: 5 MG, QD
     Route: 048
     Dates: end: 20130319
  3. FUROSEMIDE [Interacting]
     Indication: CARDIAC FAILURE
     Dosage: 40 MG, QD
     Route: 048
     Dates: end: 20130319
  4. TORASEMIDE [Interacting]
     Indication: CARDIAC FAILURE
     Dosage: 10 MG, QD
     Route: 048
     Dates: end: 20130319
  5. ASPIRINE [Concomitant]
     Indication: MYOCARDIAL ISCHAEMIA
     Dosage: 100 MG, QD
     Route: 048
  6. SINTROM [Concomitant]
     Route: 048
  7. METOPROLOL [Concomitant]
     Indication: ATRIAL FIBRILLATION
     Dosage: 25 MG, QD
     Route: 048
  8. SIMVASTATIN [Concomitant]
     Indication: MYOCARDIAL ISCHAEMIA
     Dosage: 20 MG, QD
     Route: 048
  9. LEVOTHYROXIN [Concomitant]
     Indication: HYPOTHYROIDISM
     Dosage: 50 UG, QD
     Route: 048
  10. FOLIC ACID [Concomitant]
     Indication: ANAEMIA FOLATE DEFICIENCY
     Dosage: 5 MG, QD
     Route: 048
  11. DISTRANEURIN [Concomitant]
     Indication: INSOMNIA
     Dosage: 300 MG, QD
     Route: 048

REACTIONS (10)
  - Renal failure acute [Recovered/Resolved]
  - Weight decreased [Recovering/Resolving]
  - Dehydration [Recovered/Resolved]
  - Fall [Recovered/Resolved]
  - Therapeutic response increased [Recovered/Resolved]
  - Medication error [Recovered/Resolved]
  - Vomiting [Recovered/Resolved]
  - Nausea [Recovered/Resolved]
  - Delirium [Recovered/Resolved]
  - Chromatopsia [Recovered/Resolved]
